FAERS Safety Report 5479870-4 (Version None)
Quarter: 2007Q4

REPORT INFORMATION
  Report Type: 
  Country: None (occurrence: None)
  Receive Date: 20071008
  Receipt Date: 20071001
  Transmission Date: 20080405
  Serious: Yes (Death)
  Sender: FDA-Public Use
  Company Number: CA-ROXANE LABORATORIES, INC-2007-BP-22110RO

PATIENT
  Age: 37 Year
  Sex: Male

DRUGS (7)
  1. AZATHIOPRINE [Suspect]
     Indication: CROHN'S DISEASE
     Dates: start: 20000501, end: 20000801
  2. AZATHIOPRINE [Suspect]
     Dates: start: 20000801, end: 20001001
  3. AZATHIOPRINE [Suspect]
     Dates: start: 20001001
  4. PREDNISONE [Concomitant]
     Indication: CROHN'S DISEASE
  5. PENTASA [Concomitant]
     Indication: CROHN'S DISEASE
  6. METRONIDAZOLE [Concomitant]
     Indication: CROHN'S DISEASE
  7. VOLTAREN [Concomitant]
     Indication: ARTHROPATHY

REACTIONS (5)
  - ABDOMINAL PAIN UPPER [None]
  - ANOREXIA [None]
  - HEPATIC ENZYME INCREASED [None]
  - HEPATIC NEOPLASM MALIGNANT [None]
  - HEPATOMEGALY [None]
